FAERS Safety Report 9922444 (Version 2)
Quarter: 2014Q2

REPORT INFORMATION
  Report Type: Spontaneous
  Country: IT (occurrence: IT)
  Receive Date: 20140225
  Receipt Date: 20140627
  Transmission Date: 20141212
  Serious: Yes (Hospitalization)
  Sender: FDA-Public Use
  Company Number: IT-PFIZER INC-2014050386

PATIENT
  Age: 77 Year
  Sex: Male

DRUGS (8)
  1. ZITROMAX [Suspect]
     Indication: BRONCHITIS CHRONIC
     Dosage: 1 DF, DAILY
     Route: 048
     Dates: start: 20090219, end: 20090220
  2. COUMADIN [Interacting]
     Indication: ATRIAL FIBRILLATION
     Dosage: 1 DF, AS NEEDED
     Route: 048
     Dates: start: 20080220
  3. CORDARONE [Concomitant]
     Dosage: UNK
  4. EUGLUCON [Concomitant]
     Dosage: UNK
  5. OMNIC [Concomitant]
     Dosage: UNK
  6. FINASTID ^NEOPHARMED^ [Concomitant]
     Dosage: UNK
  7. SYMBICORT [Concomitant]
     Dosage: UNK
  8. SPIRIVA [Concomitant]
     Dosage: UNK

REACTIONS (2)
  - Drug interaction [Recovered/Resolved]
  - Hypocoagulable state [Recovered/Resolved]
